FAERS Safety Report 16296646 (Version 1)
Quarter: 2019Q2

REPORT INFORMATION
  Report Type: Spontaneous
  Country: US (occurrence: US)
  Receive Date: 20190509
  Receipt Date: 20190509
  Transmission Date: 20190711
  Serious: Yes (Hospitalization)
  Sender: FDA-Public Use
  Company Number: None

PATIENT
  Sex: Female

DRUGS (4)
  1. CIMZIA [Suspect]
     Active Substance: CERTOLIZUMAB PEGOL
     Indication: RHEUMATOID ARTHRITIS
     Dosage: ?          OTHER FREQUENCY:ONCE A MONTH;?
     Route: 058
  2. PANTOPRAZOLE 40MG TABLETS [Concomitant]
     Active Substance: PANTOPRAZOLE
     Dates: start: 20181221
  3. LAMOTRIGINE 100MG TABLETS [Concomitant]
     Active Substance: LAMOTRIGINE
     Dates: start: 20190402
  4. ELIQUIS [Concomitant]
     Active Substance: APIXABAN
     Dates: start: 20190123

REACTIONS (4)
  - Chest discomfort [None]
  - Respiratory disorder [None]
  - Rheumatoid arthritis [None]
  - Fatigue [None]
